FAERS Safety Report 15834965 (Version 1)
Quarter: 2019Q1

REPORT INFORMATION
  Report Type: Spontaneous
  Country: US (occurrence: US)
  Receive Date: 20190116
  Receipt Date: 20190116
  Transmission Date: 20190417
  Serious: No
  Sender: FDA-Public Use
  Company Number: US-CHILTERN-US-2018-000214

PATIENT
  Age: 46 Year
  Sex: Male

DRUGS (10)
  1. RHOPRESSA [Suspect]
     Active Substance: NETARSUDIL MESYLATE
     Indication: PIGMENTARY GLAUCOMA
     Dosage: 1 GTT, QD
     Route: 047
     Dates: start: 20181030, end: 20181105
  2. XALATAN [Concomitant]
     Active Substance: LATANOPROST
     Indication: PIGMENTARY GLAUCOMA
     Route: 047
  3. COMBIGAN [Concomitant]
     Active Substance: BRIMONIDINE TARTRATE\TIMOLOL MALEATE
     Indication: PIGMENTARY GLAUCOMA
     Route: 047
  4. LEXAPRO [Concomitant]
     Active Substance: ESCITALOPRAM OXALATE
     Dosage: 20 MG, QD
     Route: 048
  5. ZIOPTAN [Concomitant]
     Active Substance: TAFLUPROST
     Indication: GLAUCOMA
     Dosage: 1 GTT, QD
     Route: 047
     Dates: start: 201712
  6. AZOPT [Concomitant]
     Active Substance: BRINZOLAMIDE
     Indication: GLAUCOMA
     Dosage: 1 GTT, BID
     Route: 047
     Dates: start: 20180927, end: 20181008
  7. ZYLOPRIM [Concomitant]
     Active Substance: ALLOPURINOL
     Indication: GOUT
     Dosage: 1 TABLET PER DAY
     Route: 048
  8. ZYLOPRIM [Concomitant]
     Active Substance: ALLOPURINOL
     Indication: NEPHROLITHIASIS
  9. PRINIVIL [Concomitant]
     Active Substance: LISINOPRIL
     Indication: HYPERTENSION
     Dosage: 10 MG, QD
     Route: 048
  10. NEXIUM [Concomitant]
     Active Substance: ESOMEPRAZOLE MAGNESIUM
     Indication: GASTROOESOPHAGEAL REFLUX DISEASE
     Dosage: 1 TABLET PER DAY
     Route: 048

REACTIONS (1)
  - Refraction disorder [Recovered/Resolved]

NARRATIVE: CASE EVENT DATE: 20181101
